FAERS Safety Report 5788908-6 (Version None)
Quarter: 2008Q2

REPORT INFORMATION
  Report Type: 
  Country: None (occurrence: None)
  Receive Date: 20080626
  Receipt Date: 20071114
  Transmission Date: 20081010
  Serious: No
  Sender: FDA-Public Use
  Company Number: US-ASTRAZENECA-2007UW26340

PATIENT
  Age: 73 Year
  Sex: Female

DRUGS (7)
  1. PULMICORT-100 [Suspect]
     Indication: CHRONIC OBSTRUCTIVE PULMONARY DISEASE
     Route: 055
  2. PULMICORT-100 [Suspect]
     Route: 055
  3. BROVANA [Suspect]
     Indication: CHRONIC OBSTRUCTIVE PULMONARY DISEASE
     Dosage: 15 UG/2ML BID
     Route: 055
     Dates: start: 20070601, end: 20070711
  4. XOPENEX [Suspect]
     Indication: CHRONIC OBSTRUCTIVE PULMONARY DISEASE
     Dosage: 1.25 MG/3ML TID
     Route: 055
  5. XOPENEX [Suspect]
     Dosage: 1.25 MG/3ML BID
     Route: 055
  6. POTASSIUM CHLORIDE [Concomitant]
  7. DIURETICS [Concomitant]

REACTIONS (7)
  - BACK PAIN [None]
  - BLOOD PRESSURE SYSTOLIC DECREASED [None]
  - CONSTIPATION [None]
  - DIARRHOEA [None]
  - DYSPNOEA [None]
  - KIDNEY INFECTION [None]
  - URINE OUTPUT DECREASED [None]
